FAERS Safety Report 17061026 (Version 3)
Quarter: 2019Q4

REPORT INFORMATION
  Report Type: Spontaneous
  Country: GB (occurrence: GB)
  Receive Date: 20191121
  Receipt Date: 20191216
  Transmission Date: 20200122
  Serious: Yes (Hospitalization)
  Sender: FDA-Public Use
  Company Number: GB-EMD SERONO-9126379

PATIENT
  Age: 34 Year
  Sex: Female

DRUGS (2)
  1. MAVENCLAD [Suspect]
     Active Substance: CLADRIBINE
     Indication: MULTIPLE SCLEROSIS
     Dosage: FIRST YEAR FIRST WEEK THERAPY: TWO TABLETS (10 MG EACH) ON DAYS 1 AND 2, THEN ONE TABLET ON DAYS 3 T
     Route: 048
     Dates: start: 20191018
  2. MAVENCLAD [Suspect]
     Active Substance: CLADRIBINE
     Dosage: FIRST YEAR SECOND WEEK THERAPY
     Route: 048

REACTIONS (9)
  - Malaise [Unknown]
  - Vertigo [Unknown]
  - Multiple sclerosis relapse [Recovering/Resolving]
  - Feeding disorder [Unknown]
  - Urinary tract infection [Unknown]
  - Fatigue [Unknown]
  - Headache [Unknown]
  - Mouth ulceration [Unknown]
  - Nasopharyngitis [Unknown]

NARRATIVE: CASE EVENT DATE: 201910
